FAERS Safety Report 19925340 (Version 4)
Quarter: 2021Q4

REPORT INFORMATION
  Report Type: Spontaneous
  Country: US (occurrence: US)
  Receive Date: 20211006
  Receipt Date: 20211213
  Transmission Date: 20220303
  Serious: No
  Sender: FDA-Public Use
  Company Number: NVSC2021US228586

PATIENT
  Sex: Female

DRUGS (3)
  1. KISQALI [Suspect]
     Active Substance: RIBOCICLIB
     Indication: Breast cancer
     Dosage: 400 MG, QD
     Route: 048
  2. KISQALI [Suspect]
     Active Substance: RIBOCICLIB
     Route: 048
  3. KISQALI [Suspect]
     Active Substance: RIBOCICLIB
     Route: 048

REACTIONS (6)
  - Rash [Recovered/Resolved]
  - Pruritus [Recovered/Resolved]
  - Treatment failure [Recovered/Resolved]
  - Nasopharyngitis [Not Recovered/Not Resolved]
  - Erythema [Recovered/Resolved]
  - Hypersensitivity [Not Recovered/Not Resolved]
